FAERS Safety Report 6163345-3 (Version None)
Quarter: 2009Q2

REPORT INFORMATION
  Report Type: 
  Country: None (occurrence: None)
  Receive Date: 20090420
  Receipt Date: 20090420
  Transmission Date: 20091009
  Serious: No
  Sender: FDA-Public Use
  Company Number: None

PATIENT
  Age: 60 Year
  Sex: Male
  Weight: 108.2 kg

DRUGS (7)
  1. VARENICLINE [Suspect]
     Indication: SMOKING CESSATION THERAPY
     Dosage: 1 MG BID PO
     Route: 048
     Dates: start: 20070327, end: 20070426
  2. AMLODIPINE [Concomitant]
  3. GABAPENTIN [Concomitant]
  4. MORPHINE [Concomitant]
  5. SENNOSIDES [Concomitant]
  6. TRAZODONE HCL [Concomitant]
  7. VARDENAFIL HCL [Concomitant]

REACTIONS (2)
  - NAUSEA [None]
  - VOMITING [None]
